FAERS Safety Report 9868935 (Version 3)
Quarter: 2014Q1

REPORT INFORMATION
  Report Type: Report from Study
  Country: TR (occurrence: TR)
  Receive Date: 20140204
  Receipt Date: 20140304
  Transmission Date: 20141002
  Serious: Yes (Other)
  Sender: FDA-Public Use
  Company Number: PHHY2013TR113928

PATIENT
  Age: 47 Year
  Sex: Female
  Weight: 65 kg

DRUGS (2)
  1. SANDOSTATIN LAR [Suspect]
     Indication: ACROMEGALY
     Dosage: 10 MG, ONCE EVERY 28 DAYS
     Route: 030
     Dates: start: 20030101
  2. SANDOSTATIN LAR [Suspect]
     Dosage: 10 MG, ONCE EVERY 45 DAYS
     Route: 030

REACTIONS (2)
  - Nephrolithiasis [Not Recovered/Not Resolved]
  - Inappropriate schedule of drug administration [Not Recovered/Not Resolved]
